FAERS Safety Report 18294258 (Version 1)
Quarter: 2020Q3

REPORT INFORMATION
  Report Type: Spontaneous
  Country: US (occurrence: US)
  Receive Date: 20200921
  Receipt Date: 20200921
  Transmission Date: 20201103
  Serious: Yes (Hospitalization)
  Sender: FDA-Public Use
  Company Number: None

PATIENT
  Sex: Male

DRUGS (7)
  1. ATORVASTATIN [Concomitant]
     Active Substance: ATORVASTATIN
  2. DITIAZEM ER [Concomitant]
     Active Substance: DILTIAZEM
  3. BELSOMRA [Concomitant]
     Active Substance: SUVOREXANT
  4. FOLIC ACID. [Concomitant]
     Active Substance: FOLIC ACID
  5. ENBREL [Suspect]
     Active Substance: ETANERCEPT
     Indication: MULTIPLE SCLEROSIS
     Route: 058
     Dates: start: 20190220
  6. CLINDAMYCIN. [Concomitant]
     Active Substance: CLINDAMYCIN
  7. HYDROCO/APAP [Concomitant]
     Active Substance: ACETAMINOPHEN\HYDROCODONE

REACTIONS (1)
  - Therapy interrupted [None]
